FAERS Safety Report 24292061 (Version 1)
Quarter: 2024Q3

REPORT INFORMATION
  Report Type: Spontaneous
  Country: US (occurrence: None)
  Receive Date: 20240906
  Receipt Date: 20240906
  Transmission Date: 20241017
  Serious: Yes (Other)
  Sender: Public
  Company Number: None

PATIENT
  Age: 73 Year
  Sex: Male
  Weight: 96.3 kg

DRUGS (1)
  1. GAMMAKED [Suspect]
     Active Substance: HUMAN IMMUNOGLOBULIN G
     Indication: Chronic inflammatory demyelinating polyradiculoneuropathy
     Dosage: ?60 G GRAM(S) DAILY X 3 DAYS INTRAVENOUS
     Route: 042
     Dates: start: 20240905

REACTIONS (3)
  - Headache [None]
  - Pyrexia [None]
  - Nocturia [None]

NARRATIVE: CASE EVENT DATE: 20240905
